FAERS Safety Report 4712033-6 (Version None)
Quarter: 2005Q2

REPORT INFORMATION
  Report Type: 
  Country: None (occurrence: None)
  Receive Date: 20050629
  Receipt Date: 20050408
  Transmission Date: 20051028
  Serious: No
  Sender: FDA-Public Use
  Company Number: 05P-163-0296882-00

PATIENT
  Sex: Female
  Weight: 67.1324 kg

DRUGS (8)
  1. HUMIRA [Suspect]
     Indication: RHEUMATOID ARTHRITIS
     Dosage: 40 MG, 1 IN 2 WK
     Dates: start: 20040101
  2. ZETIA [Concomitant]
  3. VALSARTAN [Concomitant]
  4. METFORMIN HCL [Concomitant]
  5. RABEPRAZOLE SODIUM [Concomitant]
  6. GABAPENTIN [Concomitant]
  7. AMITRIPTYLINE HCL [Concomitant]
  8. CLOPIDOGREL BISULFATE [Concomitant]

REACTIONS (2)
  - COUGH [None]
  - SNEEZING [None]
